FAERS Safety Report 6041840-5 (Version None)
Quarter: 2009Q1

REPORT INFORMATION
  Report Type: 
  Country: None (occurrence: None)
  Receive Date: 20090116
  Receipt Date: 20090108
  Transmission Date: 20090719
  Serious: Yes (Life-Threatening, Hospitalization)
  Sender: FDA-Public Use
  Company Number: CA-PFIZER INC-2008089475

PATIENT

DRUGS (6)
  1. CELEBREX [Suspect]
     Indication: BACK PAIN
     Route: 048
  2. CELEBREX [Suspect]
     Indication: ARTHRITIS
  3. OMEPRAZOLE [Concomitant]
  4. GLUCOSAMINE [Concomitant]
  5. MULTI-VITAMINS [Concomitant]
  6. VOLTAREN [Concomitant]

REACTIONS (8)
  - ANGIOEDEMA [None]
  - DIARRHOEA [None]
  - DRUG HYPERSENSITIVITY [None]
  - DYSPNOEA [None]
  - FEELING HOT [None]
  - HYPOTENSION [None]
  - NAUSEA [None]
  - SWELLING FACE [None]
